FAERS Safety Report 4553336-8 (Version None)
Quarter: 2005Q1

REPORT INFORMATION
  Report Type: 
  Country: None (occurrence: None)
  Receive Date: 20050112
  Receipt Date: 20041229
  Transmission Date: 20050727
  Serious: Yes (Life-Threatening, Hospitalization)
  Sender: FDA-Public Use
  Company Number: US_0501109792

PATIENT
  Age: 57 Year
  Sex: Female

DRUGS (1)
  1. FORTEO [Suspect]
     Indication: OSTEOPOROSIS
     Dosage: 20 UG/1 DAY
     Dates: start: 20041202, end: 20041206

REACTIONS (5)
  - ANAPHYLACTIC SHOCK [None]
  - CARDIAC ARREST [None]
  - FEELING ABNORMAL [None]
  - HEADACHE [None]
  - HEPATIC FAILURE [None]
